FAERS Safety Report 23411425 (Version 1)
Quarter: 2024Q1

REPORT INFORMATION
  Report Type: Spontaneous
  Country: IT (occurrence: IT)
  Receive Date: 20240117
  Receipt Date: 20240117
  Transmission Date: 20240410
  Serious: Yes (Hospitalization)
  Sender: FDA-Public Use
  Company Number: None

PATIENT
  Age: 65 Year
  Sex: Female

DRUGS (1)
  1. HALCION [Suspect]
     Active Substance: TRIAZOLAM
     Indication: Insomnia
     Dosage: 250 UG, (FREQUENCY: 24 HOURS)
     Route: 048
     Dates: start: 202301, end: 20231121

REACTIONS (4)
  - Hypotension [Recovering/Resolving]
  - Syncope [Recovering/Resolving]
  - Drug dependence [Recovering/Resolving]
  - Intentional overdose [Recovering/Resolving]

NARRATIVE: CASE EVENT DATE: 20231123
